FAERS Safety Report 4787113-X (Version None)
Quarter: 2005Q4

REPORT INFORMATION
  Report Type: 
  Country: None (occurrence: None)
  Receive Date: 20051004
  Receipt Date: 20050921
  Transmission Date: 20060501
  Serious: Yes (Other)
  Sender: FDA-Public Use
  Company Number: US-GLAXOSMITHKLINE-A0575635A

PATIENT
  Age: 86 Year
  Sex: Male
  Weight: 80.9 kg

DRUGS (6)
  1. ECOTRIN [Suspect]
     Indication: PROPHYLAXIS
     Route: 048
  2. ATENOLOL [Concomitant]
  3. ALTACE [Concomitant]
  4. HYDROCHLOROTHIAZIDE [Concomitant]
  5. CALCIUM + VITAMIN D [Concomitant]
  6. VITAMIN B-12 [Concomitant]

REACTIONS (2)
  - PIGMENTATION DISORDER [None]
  - SKIN ATROPHY [None]
